FAERS Safety Report 14646555 (Version 1)
Quarter: 2018Q1

REPORT INFORMATION
  Report Type: Report from Study
  Country: TH (occurrence: TH)
  Receive Date: 20180316
  Receipt Date: 20180316
  Transmission Date: 20180509
  Serious: Yes (Other)
  Sender: FDA-Public Use
  Company Number: TH-ROCHE-2078847

PATIENT
  Sex: Male

DRUGS (4)
  1. ZELBORAF [Suspect]
     Active Substance: VEMURAFENIB
     Indication: METASTATIC MALIGNANT MELANOMA
  2. ZELBORAF [Suspect]
     Active Substance: VEMURAFENIB
     Indication: BRAF V600E MUTATION POSITIVE
     Route: 048
  3. ZELBORAF [Suspect]
     Active Substance: VEMURAFENIB
     Indication: MALIGNANT MELANOMA
  4. TEMOZOLOMIDE. [Concomitant]
     Active Substance: TEMOZOLOMIDE

REACTIONS (8)
  - Brain neoplasm [Unknown]
  - Hyperkeratosis [Recovering/Resolving]
  - Facial paresis [Recovering/Resolving]
  - Tumour haemorrhage [Unknown]
  - Skin toxicity [Recovering/Resolving]
  - Acoustic neuroma [Unknown]
  - Fatigue [Unknown]
  - Deafness [Unknown]
